FAERS Safety Report 4867394-4 (Version None)
Quarter: 2005Q4

REPORT INFORMATION
  Report Type: 
  Country: None (occurrence: None)
  Receive Date: 20051223
  Receipt Date: 20051223
  Transmission Date: 20060501
  Serious: Yes (Life-Threatening, Hospitalization, Other)
  Sender: FDA-Public Use
  Company Number: None

PATIENT
  Sex: Male
  Weight: 47.1741 kg

DRUGS (11)
  1. LYRICA [Suspect]
     Indication: DIABETIC NEUROPATHY
     Dosage: 150 MG TWICE DAILY PO
     Route: 048
     Dates: start: 20051213, end: 20051218
  2. COREG [Concomitant]
  3. LIPITOR [Concomitant]
  4. ALTACE [Concomitant]
  5. TOLMETIN SODIUM [Concomitant]
  6. PREVACID [Concomitant]
  7. LASIX [Concomitant]
  8. POTASSIUM CHLORIDE [Concomitant]
  9. VICODIN [Concomitant]
  10. METOLAZONE [Concomitant]
  11. INSULIN [Concomitant]

REACTIONS (12)
  - AGGRESSION [None]
  - CHRONIC OBSTRUCTIVE PULMONARY DISEASE [None]
  - CONDITION AGGRAVATED [None]
  - CONFUSIONAL STATE [None]
  - DYSPNOEA [None]
  - ERYTHEMA [None]
  - FATIGUE [None]
  - LOCAL SWELLING [None]
  - OXYGEN SATURATION DECREASED [None]
  - RESPIRATORY DISORDER [None]
  - SOMNOLENCE [None]
  - SWELLING FACE [None]
